FAERS Safety Report 23144846 (Version 2)
Quarter: 2023Q4

REPORT INFORMATION
  Report Type: Spontaneous
  Country: US (occurrence: None)
  Receive Date: 20231103
  Receipt Date: 20231120
  Transmission Date: 20240110
  Serious: Yes (Death, Other)
  Sender: FDA-Public Use
  Company Number: 2023A248900

PATIENT
  Age: 27 Day
  Sex: Male
  Weight: 3.2 kg

DRUGS (1)
  1. BEYFORTUS [Suspect]
     Active Substance: NIRSEVIMAB-ALIP
     Indication: Antiviral prophylaxis
     Dosage: 5 ML, TOTAL5.0ML ONCE/SINGLE ADMINISTRATION
     Route: 030
     Dates: start: 20231019, end: 20231019

REACTIONS (6)
  - Death [Fatal]
  - Nasal congestion [Unknown]
  - Infant irritability [Unknown]
  - Regurgitation [Unknown]
  - Body temperature increased [Unknown]
  - Faeces discoloured [Unknown]

NARRATIVE: CASE EVENT DATE: 20231021
